FAERS Safety Report 13128326 (Version 2)
Quarter: 2017Q1

REPORT INFORMATION
  Report Type: Spontaneous
  Country: IL (occurrence: IL)
  Receive Date: 20170118
  Receipt Date: 20170130
  Transmission Date: 20170428
  Serious: Yes (Hospitalization)
  Sender: FDA-Public Use
  Company Number: IL-SHIRE-IL201700528

PATIENT
  Age: 4 Decade
  Sex: Female

DRUGS (1)
  1. VPRIV [Suspect]
     Active Substance: VELAGLUCERASE ALFA
     Indication: GAUCHER^S DISEASE
     Dosage: 7/7/8 VIALS ALTERNATING 1X/3WKS, ALTERNATING 1X/3WKS
     Route: 041
     Dates: start: 201503

REACTIONS (2)
  - Inappropriate schedule of drug administration [Unknown]
  - Appendix disorder [Recovered/Resolved]

NARRATIVE: CASE EVENT DATE: 201503
